FAERS Safety Report 7213433-5 (Version None)
Quarter: 2010Q4

REPORT INFORMATION
  Report Type: 
  Country: None (occurrence: None)
  Receive Date: 20101126
  Receipt Date: 20100726
  Transmission Date: 20110411
  Serious: No
  Sender: FDA-Public Use
  Company Number: 312053

PATIENT
  Sex: Female

DRUGS (4)
  1. VICTOZA [Suspect]
     Indication: TYPE 2 DIABETES MELLITUS
     Dosage: SUBCUTANEOUS
     Route: 058
  2. METFORMNI (METFORMIN) [Concomitant]
  3. LIPITOR [Concomitant]
  4. TOPROL-XL [Concomitant]

REACTIONS (2)
  - DIARRHOEA [None]
  - HEADACHE [None]
